FAERS Safety Report 8256296-1 (Version None)
Quarter: 2012Q2

REPORT INFORMATION
  Report Type: 
  Country: None (occurrence: None)
  Receive Date: 20120403
  Receipt Date: 20120327
  Transmission Date: 20120825
  Serious: Yes (Hospitalization, Other)
  Sender: FDA-Public Use
  Company Number: IE-US-EMD SERONO, INC.-7114280

PATIENT
  Sex: Female

DRUGS (11)
  1. REBIF [Suspect]
     Indication: RELAPSING-REMITTING MULTIPLE SCLEROSIS
     Route: 058
     Dates: start: 20110718, end: 20120206
  2. CIPRAGER [Suspect]
     Indication: DEPRESSION
  3. EPILIN (EPILIM) [Concomitant]
     Indication: EPILEPSY
  4. FLORINEF [Concomitant]
     Indication: PRODUCT USED FOR UNKNOWN INDICATION
  5. REBIF [Suspect]
     Route: 058
     Dates: start: 20120301
  6. LOPRAZ (OMEPRAZOLE) [Concomitant]
     Indication: HYPERCHLORHYDRIA
  7. VALPROIC ACID [Concomitant]
     Indication: PRODUCT USED FOR UNKNOWN INDICATION
  8. FLUTICASONE PROPIONATE/SALMETEROL [Concomitant]
     Indication: PRODUCT USED FOR UNKNOWN INDICATION
     Route: 045
  9. CARDIAC MEDICATION [Concomitant]
     Indication: CARDIAC DISORDER
     Dates: end: 20120206
  10. JANUVIA [Suspect]
     Indication: BLOOD GLUCOSE
  11. DIAMICRON MR [Suspect]
     Indication: BLOOD GLUCOSE

REACTIONS (7)
  - LOWER RESPIRATORY TRACT INFECTION [None]
  - HEADACHE [None]
  - SYNCOPE [None]
  - COUGH [None]
  - FEELING COLD [None]
  - CHILLS [None]
  - TREATMENT NONCOMPLIANCE [None]
